FAERS Safety Report 13654942 (Version 1)
Quarter: 2017Q2

REPORT INFORMATION
  Report Type: Spontaneous
  Country: US (occurrence: US)
  Receive Date: 20170614
  Receipt Date: 20170614
  Transmission Date: 20170830
  Serious: Yes (Death)
  Sender: FDA-Public Use
  Company Number: None

PATIENT
  Age: 75 Year
  Sex: Female

DRUGS (14)
  1. DEXAMETH PHOS 10MG.ML [Suspect]
     Active Substance: DEXAMETHASONE SODIUM PHOSPHATE
     Indication: CHRONIC LYMPHOCYTIC LEUKAEMIA
     Dosage: D1-2 EVERY 4 WEEKS
     Route: 042
     Dates: start: 20170411, end: 201705
  2. ATORVASTATIN [Concomitant]
     Active Substance: ATORVASTATIN
  3. NITROFUR [Concomitant]
     Active Substance: NITROFURANTOIN
  4. PROCHLORPER [Concomitant]
  5. FAMOTIDINE. [Suspect]
     Active Substance: FAMOTIDINE
     Indication: CHRONIC LYMPHOCYTIC LEUKAEMIA
     Dosage: D1, 2 EVERY FOUR WEEKS
     Route: 042
     Dates: start: 20170411, end: 201705
  6. GRANISETRON [Concomitant]
     Active Substance: GRANISETRON
  7. GRANISETRON [Suspect]
     Active Substance: GRANISETRON
     Indication: CHRONIC LYMPHOCYTIC LEUKAEMIA
     Dosage: D1, 2 EVERY FOUR WEEKS
     Route: 042
     Dates: start: 20170411, end: 201705
  8. CARVEDILOL. [Concomitant]
     Active Substance: CARVEDILOL
  9. GABAPENTIN. [Concomitant]
     Active Substance: GABAPENTIN
  10. DIPHENHYDRAMIN [Suspect]
     Active Substance: DIPHENHYDRAMINE
     Indication: CHRONIC LYMPHOCYTIC LEUKAEMIA
     Dosage: D1, 2 EVERY FOUR WEEKS
     Route: 042
     Dates: start: 20170411, end: 201705
  11. HYDROCO/APAP [Concomitant]
     Active Substance: ACETAMINOPHEN\HYDROCODONE
  12. BENDEKA [Suspect]
     Active Substance: BENDAMUSTINE HYDROCHLORIDE
     Indication: CHRONIC LYMPHOCYTIC LEUKAEMIA
     Dosage: D1,2 EVERY 4 WEEKS
     Route: 042
     Dates: start: 20170411, end: 201705
  13. VENLAFAXINE [Concomitant]
     Active Substance: VENLAFAXINE HYDROCHLORIDE
  14. CEPHALEXIN. [Concomitant]
     Active Substance: CEPHALEXIN

REACTIONS (1)
  - Death [None]

NARRATIVE: CASE EVENT DATE: 20170515
